FAERS Safety Report 8239471-1 (Version None)
Quarter: 2012Q1

REPORT INFORMATION
  Report Type: 
  Country: None (occurrence: None)
  Receive Date: 20120328
  Receipt Date: 20120316
  Transmission Date: 20120608
  Serious: Yes (Hospitalization)
  Sender: FDA-Public Use
  Company Number: IE-US-EMD SERONO, INC.-7090236

PATIENT
  Sex: Female

DRUGS (2)
  1. REBIF [Suspect]
     Indication: RELAPSING-REMITTING MULTIPLE SCLEROSIS
     Route: 058
     Dates: start: 20110228
  2. CALCIUM CARBONATE [Concomitant]
     Indication: PRODUCT USED FOR UNKNOWN INDICATION
     Dates: start: 20120301

REACTIONS (7)
  - MUSCULAR WEAKNESS [None]
  - PAIN IN EXTREMITY [None]
  - ANXIETY [None]
  - FATIGUE [None]
  - MUSCLE TIGHTNESS [None]
  - MULTIPLE SCLEROSIS RELAPSE [None]
  - DYSPNOEA [None]
